FAERS Safety Report 12332757 (Version 2)
Quarter: 2016Q2

REPORT INFORMATION
  Report Type: Spontaneous
  Country: US (occurrence: US)
  Receive Date: 20160504
  Receipt Date: 20160512
  Transmission Date: 20160815
  Serious: No
  Sender: FDA-Public Use
  Company Number: US-ELI_LILLY_AND_COMPANY-US201604009504

PATIENT
  Sex: Male

DRUGS (4)
  1. LANTUS [Concomitant]
     Active Substance: INSULIN GLARGINE
     Indication: PRODUCT USED FOR UNKNOWN INDICATION
     Dosage: 18 U, EACH EVENING
     Route: 065
  2. HUMALOG [Suspect]
     Active Substance: INSULIN LISPRO
     Indication: TYPE 2 DIABETES MELLITUS
     Dosage: 6 U, EACH MORNING
     Route: 065
     Dates: start: 201603
  3. HUMALOG [Suspect]
     Active Substance: INSULIN LISPRO
     Dosage: 7-8 U, QD
     Route: 065
     Dates: start: 201603
  4. HUMALOG [Suspect]
     Active Substance: INSULIN LISPRO
     Dosage: 7-8 U, QD
     Route: 065
     Dates: start: 201603

REACTIONS (3)
  - Glycosylated haemoglobin increased [Unknown]
  - Accidental underdose [Unknown]
  - Drug ineffective [Unknown]
